FAERS Safety Report 7581909-7 (Version None)
Quarter: 2011Q2

REPORT INFORMATION
  Report Type: 
  Country: None (occurrence: None)
  Receive Date: 20110629
  Receipt Date: 20110623
  Transmission Date: 20111010
  Serious: Yes (Death)
  Sender: FDA-Public Use
  Company Number: US-CELGENEUS-163-21880-11053514

PATIENT
  Sex: Male

DRUGS (9)
  1. JANTOVEN [Concomitant]
     Route: 065
  2. FOLTX [Concomitant]
     Route: 065
  3. LIPITOR [Concomitant]
     Route: 065
  4. CARAFATE [Concomitant]
     Route: 065
  5. LASIX [Concomitant]
     Route: 065
  6. METFORMIN HCL [Concomitant]
     Route: 065
  7. REVLIMID [Suspect]
     Indication: MULTIPLE MYELOMA
     Dosage: 12.5 MILLIGRAM
     Route: 048
     Dates: start: 20091201, end: 20110101
  8. ATENOLOL [Concomitant]
     Route: 065
  9. BENTYL [Concomitant]
     Route: 065

REACTIONS (3)
  - RESPIRATORY FAILURE [None]
  - CARDIAC ARREST [None]
  - PNEUMONIA [None]
